FAERS Safety Report 18354405 (Version 1)
Quarter: 2020Q4

REPORT INFORMATION
  Report Type: Spontaneous
  Country: US (occurrence: US)
  Receive Date: 20201006
  Receipt Date: 20201006
  Transmission Date: 20210114
  Serious: Yes (Death)
  Sender: FDA-Public Use
  Company Number: None

PATIENT
  Sex: Male

DRUGS (16)
  1. MYCOPHENOLATE [Suspect]
     Active Substance: MYCOPHENOLIC ACID
     Route: 048
     Dates: start: 20190201
  2. ASPIRIN 81 MG EC TABLET [Concomitant]
  3. LANTUS SOLOSTAR 100 UNIT/ML (3 ML) PENINSULN INJECTION PEN [Concomitant]
  4. OMEGA-3 ACID ETHYL ESTERS (LOVAZA) 1 GRAM CAPSULE [Concomitant]
  5. AMLODIPINE (NORVASC) 5 MG TABLET [Concomitant]
  6. DOCUSATE SODIUM (COLACE) 250 MG CAPSULE [Concomitant]
  7. INSULIN ASPART (NOVOLOG FLEXPEN) 100 UNIT/ML PENINSULN INJECTION PEN [Concomitant]
  8. OMEPRAZOLE (PRILOSEC) 20 MG CAPSULE [Concomitant]
  9. PREDNISONE (DELTASONE) 5 MG TABLET [Concomitant]
  10. TAMSULOSIN (FLOMAX) 0.4 MG 24 HR CAPSULE [Concomitant]
  11. CYCLOSPORINE. [Suspect]
     Active Substance: CYCLOSPORINE
     Route: 048
     Dates: start: 20190322
  12. METHENAMINE (HIPREX) 1 GRAM TABLET [Concomitant]
  13. ATORVASTATIN (LIPITOR) 10 MG TABLET [Concomitant]
  14. HYDROCHLOROTHIAZIDE (HYDRODIURIL) 25 MG TABLET [Concomitant]
  15. HYDROCODONE-ACETAMINOPHEN (NORCO) 5-325 MG TABLET [Concomitant]
  16. OXYBUTYNIN (DITROPAN) 5 MG TABLET [Concomitant]

REACTIONS (1)
  - Death [None]
